FAERS Safety Report 13448613 (Version 2)
Quarter: 2017Q2

REPORT INFORMATION
  Report Type: Spontaneous
  Country: AU (occurrence: AU)
  Receive Date: 20170417
  Receipt Date: 20170504
  Transmission Date: 20170830
  Serious: Yes (Death, Other)
  Sender: FDA-Public Use
  Company Number: AU-009507513-1704AUS005082

PATIENT
  Age: 77 Year
  Sex: Female
  Weight: 83 kg

DRUGS (1)
  1. PEMBROLIZUMAB. [Suspect]
     Active Substance: PEMBROLIZUMAB
     Dosage: 165 MILLIGRAM, ONCE EVERY 3 WEEKS
     Route: 041
     Dates: start: 20160914, end: 20161013

REACTIONS (5)
  - Thyroiditis [Fatal]
  - Hepatitis [Fatal]
  - Myasthenia gravis [Fatal]
  - Pneumonia aspiration [Fatal]
  - Respiratory failure [Fatal]

NARRATIVE: CASE EVENT DATE: 20161013
